FAERS Safety Report 4512567-3 (Version None)
Quarter: 2004Q4

REPORT INFORMATION
  Report Type: 
  Country: None (occurrence: None)
  Receive Date: 20041129
  Receipt Date: 20041119
  Transmission Date: 20050328
  Serious: Yes (Life-Threatening)
  Sender: FDA-Public Use
  Company Number: GB-MERCK-0411GBR00191

PATIENT
  Age: 66 Year
  Sex: Male
  Weight: 77 kg

DRUGS (9)
  1. ZOCOR [Suspect]
     Indication: INTERNATIONAL NORMALISED RATIO ABNORMAL
     Route: 048
     Dates: end: 20040101
  2. ASPIRIN [Suspect]
     Indication: MYOCARDIAL ISCHAEMIA
     Route: 048
     Dates: end: 20041108
  3. WARFARIN [Suspect]
     Indication: ANGIOPLASTY
     Route: 048
     Dates: end: 20041106
  4. WARFARIN [Suspect]
     Indication: MITRAL VALVE REPAIR
     Route: 048
     Dates: end: 20041106
  5. CLARITHROMYCIN [Suspect]
     Indication: INTERNATIONAL NORMALISED RATIO ABNORMAL
     Route: 065
  6. SENNA [Concomitant]
     Indication: CONSTIPATION
     Route: 048
     Dates: end: 20041108
  7. DIGOXIN [Concomitant]
     Route: 048
  8. FUROSEMIDE [Concomitant]
     Route: 048
  9. AMOXICILLIN AND CLAVULANATE POTASSIUM [Concomitant]
     Indication: LOWER RESPIRATORY TRACT INFECTION
     Route: 048
     Dates: start: 20041105

REACTIONS (1)
  - GASTROINTESTINAL HAEMORRHAGE [None]
